FAERS Safety Report 9418849 (Version 1)
Quarter: 2013Q3

REPORT INFORMATION
  Report Type: Spontaneous
  Country: AU (occurrence: AU)
  Receive Date: 20130725
  Receipt Date: 20130725
  Transmission Date: 20140515
  Serious: Yes (Hospitalization)
  Sender: FDA-Public Use
  Company Number: AU-009507513-1307AUS007741

PATIENT
  Age: 5 Year
  Sex: Female

DRUGS (3)
  1. LORATADINE [Suspect]
     Dosage: 4 TABLETS
     Route: 048
     Dates: start: 20110626
  2. LEVLEN ED [Suspect]
     Dosage: 7 ACTIVE
     Route: 048
     Dates: start: 20110626
  3. SERTRALINE HYDROCHLORIDE [Suspect]
     Dosage: 3-4 TABLETS
     Dates: start: 20110626

REACTIONS (4)
  - Abdominal pain upper [Unknown]
  - Nausea [Unknown]
  - Accidental exposure to product by child [Unknown]
  - Accidental overdose [Unknown]
